FAERS Safety Report 4334740-X (Version None)
Quarter: 2004Q2

REPORT INFORMATION
  Report Type: 
  Country: None (occurrence: None)
  Receive Date: 20040405
  Receipt Date: 20040324
  Transmission Date: 20050107
  Serious: Yes (Hospitalization)
  Sender: FDA-Public Use
  Company Number: US-JNJFOC-20040305704

PATIENT
  Age: 66 Year
  Sex: Female

DRUGS (17)
  1. DURAGESIC [Suspect]
     Indication: PAIN
     Dosage: 100 UG, 1 IN 72 HOUR, TRANSDERMAL
     Route: 062
     Dates: start: 20010101
  2. DICYCLOMINE [Concomitant]
  3. POTASSIUM [Concomitant]
  4. HUMULIN R [Concomitant]
  5. LEVOXYL [Concomitant]
  6. PROTONIX [Concomitant]
  7. ISOSORIBIDE [Concomitant]
  8. PROMETHAZINE [Concomitant]
  9. METOPROLOL [Concomitant]
  10. CELEXA [Concomitant]
  11. LOVASTATIN [Concomitant]
  12. PLAVIX [Concomitant]
  13. LISINOPRIL [Concomitant]
  14. HYDROCODONE [Concomitant]
  15. DIPHENOXYLATE [Concomitant]
  16. LORAZEPAM [Concomitant]
  17. TRAMADOL HCL [Concomitant]

REACTIONS (4)
  - DRUG EFFECT DECREASED [None]
  - MYOCARDIAL INFARCTION [None]
  - PHARMACEUTICAL PRODUCT COMPLAINT [None]
  - WHITE BLOOD CELL COUNT INCREASED [None]
